FAERS Safety Report 15417679 (Version 2)
Quarter: 2018Q4

REPORT INFORMATION
  Report Type: Report from Study
  Country: US (occurrence: US)
  Receive Date: 20180924
  Receipt Date: 20181017
  Transmission Date: 20190204
  Serious: Yes (Other)
  Sender: FDA-Public Use
  Company Number: US-ROCHE-2185622

PATIENT
  Age: 65 Year
  Sex: Female
  Weight: 145.28 kg

DRUGS (2)
  1. OCREVUS [Suspect]
     Active Substance: OCRELIZUMAB
     Indication: PRIMARY PROGRESSIVE MULTIPLE SCLEROSIS
     Dosage: TWO INFUSIONS
     Route: 065
     Dates: start: 201805
  2. AMPYRA [Concomitant]
     Active Substance: DALFAMPRIDINE
     Indication: MULTIPLE SCLEROSIS

REACTIONS (4)
  - Bacterial infection [Not Recovered/Not Resolved]
  - Paraesthesia [Recovered/Resolved]
  - Retching [Not Recovered/Not Resolved]
  - Parosmia [Not Recovered/Not Resolved]

NARRATIVE: CASE EVENT DATE: 201809
